FAERS Safety Report 11273373 (Version 2)
Quarter: 2015Q3

REPORT INFORMATION
  Report Type: Spontaneous
  Country: CN (occurrence: CN)
  Receive Date: 20150715
  Receipt Date: 20150724
  Transmission Date: 20151125
  Serious: Yes (Hospitalization, Other)
  Sender: FDA-Public Use
  Company Number: CN-PFIZER INC-2015229845

PATIENT
  Age: 30 Year
  Sex: Female

DRUGS (1)
  1. LIPITOR [Suspect]
     Active Substance: ATORVASTATIN CALCIUM
     Indication: CAROTID ARTERY DISEASE
     Dosage: 20 MG, 1X/DAY
     Route: 048
     Dates: start: 201506

REACTIONS (1)
  - Dermatitis allergic [Recovered/Resolved]
